FAERS Safety Report 4766345-0 (Version None)
Quarter: 2005Q3

REPORT INFORMATION
  Report Type: 
  Country: None (occurrence: None)
  Receive Date: 20050909
  Receipt Date: 20050826
  Transmission Date: 20060218
  Serious: Yes (Death, Hospitalization)
  Sender: FDA-Public Use
  Company Number: 2005-01607

PATIENT
  Age: 59 Year
  Sex: Female

DRUGS (5)
  1. VELCADE [Suspect]
     Indication: MULTIPLE MYELOMA
     Dosage: 1.90 MG, INTRAVENOUS
     Route: 042
     Dates: start: 20050124, end: 20050407
  2. ALVEDON (PARACETAMOL) TABLET [Concomitant]
  3. MOVICOL (SODIUM BICARBONATE, SODIUM CHLORIDE, MACROGOL, POTASSIUM CHLO [Concomitant]
  4. LASIX RETARD (FUROSEMIDE) [Concomitant]
  5. LORABID (LORACARBEF) CAPSULE [Concomitant]

REACTIONS (16)
  - CARDIOMEGALY [None]
  - CONTRAST MEDIA REACTION [None]
  - DIALYSIS [None]
  - DRUG INEFFECTIVE [None]
  - GENERAL PHYSICAL HEALTH DETERIORATION [None]
  - HEPATOMEGALY [None]
  - HYPOTENSION [None]
  - LUNG DISORDER [None]
  - LYMPHADENOPATHY [None]
  - METASTASES TO HEART [None]
  - METASTASES TO PLEURA [None]
  - PLEURAL EFFUSION [None]
  - PULMONARY HYPERTENSION [None]
  - PULMONARY OEDEMA [None]
  - RENAL FAILURE ACUTE [None]
  - RIGHT VENTRICULAR FAILURE [None]
